FAERS Safety Report 23902225 (Version 1)
Quarter: 2024Q2

REPORT INFORMATION
  Report Type: Spontaneous
  Country: US (occurrence: None)
  Receive Date: 20240527
  Receipt Date: 20240527
  Transmission Date: 20240716
  Serious: No
  Sender: FDA-Public Use
  Company Number: US-ROCHE-3407948

PATIENT
  Age: 59 Year
  Sex: Female
  Weight: 61.29 kg

DRUGS (8)
  1. ACTEMRA [Suspect]
     Active Substance: TOCILIZUMAB
     Indication: Arteritis
     Route: 058
     Dates: start: 201902, end: 202002
  2. ACTEMRA [Suspect]
     Active Substance: TOCILIZUMAB
  3. ACTEMRA [Suspect]
     Active Substance: TOCILIZUMAB
  4. ACTEMRA [Suspect]
     Active Substance: TOCILIZUMAB
     Indication: Pneumonitis
     Route: 058
     Dates: start: 202302
  5. ACTEMRA [Suspect]
     Active Substance: TOCILIZUMAB
  6. ACTEMRA [Suspect]
     Active Substance: TOCILIZUMAB
  7. KEVZARA [Concomitant]
     Active Substance: SARILUMAB
     Indication: Arteritis
     Route: 058
     Dates: start: 2020, end: 202302
  8. KEVZARA [Concomitant]
     Active Substance: SARILUMAB
     Indication: Pneumonitis

REACTIONS (3)
  - Hepatic enzyme increased [Recovered/Resolved]
  - Accidental exposure to product [Unknown]
  - Off label use [Unknown]

NARRATIVE: CASE EVENT DATE: 20230814
